FAERS Safety Report 7973249-9 (Version None)
Quarter: 2011Q4

REPORT INFORMATION
  Report Type: 
  Country: None (occurrence: None)
  Receive Date: 20111213
  Receipt Date: 20111201
  Transmission Date: 20120403
  Serious: No
  Sender: FDA-Public Use
  Company Number: PHHY2010US79642

PATIENT
  Sex: Male

DRUGS (9)
  1. TASIGNA [Suspect]
     Dosage: 800 MG, DAILY
     Route: 048
  2. NORVASC [Concomitant]
     Dosage: 2.5 MG, UNK
  3. TOPROL-XL [Concomitant]
     Dosage: 25 MG, UNK
  4. PREVACID [Concomitant]
     Dosage: 30 MG, UNK
  5. OMEPRAZOLE [Concomitant]
     Dosage: 10 MG, UNK
  6. TASIGNA [Suspect]
     Dosage: 200 MG, BID
     Route: 048
  7. AMLODIPINE [Concomitant]
     Dosage: 2.5 MG, UNK
  8. METOPROLOL TARTRATE [Concomitant]
  9. LIPITOR [Concomitant]

REACTIONS (5)
  - PRURITUS [None]
  - EYE PRURITUS [None]
  - EYELIDS PRURITUS [None]
  - LACRIMATION INCREASED [None]
  - OCULAR HYPERAEMIA [None]
